FAERS Safety Report 9322560 (Version 2)
Quarter: 2013Q2

REPORT INFORMATION
  Report Type: Spontaneous
  Country: GB (occurrence: GB)
  Receive Date: 20130531
  Receipt Date: 20130618
  Transmission Date: 20140414
  Serious: Yes (Hospitalization, Other)
  Sender: FDA-Public Use
  Company Number: GB-WATSON-2013-10096

PATIENT
  Sex: Female

DRUGS (1)
  1. METRONIDAZOLE (UNKNOWN) [Suspect]
     Indication: PARASITIC GASTROENTERITIS
     Dosage: 400 MG, TID
     Route: 065
     Dates: start: 20130402, end: 20130409

REACTIONS (4)
  - Contusion [Recovering/Resolving]
  - Psychotic disorder [Recovering/Resolving]
  - Confusional state [Recovering/Resolving]
  - Pain in extremity [Recovering/Resolving]
